FAERS Safety Report 6389966-0 (Version None)
Quarter: 2009Q4

REPORT INFORMATION
  Report Type: 
  Country: None (occurrence: None)
  Receive Date: 20091006
  Receipt Date: 20090715
  Transmission Date: 20100525
  Serious: No
  Sender: FDA-Public Use
  Company Number: US-BRISTOL-MYERS SQUIBB COMPANY-14695282

PATIENT
  Age: 66 Year
  Sex: Male

DRUGS (3)
  1. AVAPRO [Suspect]
     Indication: BLOOD PRESSURE
     Dosage: 1 D.F= 300 UNITS NOT SPECIFIED THERAPY DATES:}4 YEARS
     Route: 048
     Dates: start: 20030403
  2. PROSCAR [Suspect]
  3. LOVASTATIN [Suspect]

REACTIONS (1)
  - URINARY INCONTINENCE [None]
